FAERS Safety Report 12376475 (Version 4)
Quarter: 2020Q2

REPORT INFORMATION
  Report Type: Spontaneous
  Country: ES (occurrence: ES)
  Receive Date: 20160517
  Receipt Date: 20200624
  Transmission Date: 20200713
  Serious: Yes (Other)
  Sender: FDA-Public Use
  Company Number: ES-PFIZER INC-2016245765

PATIENT
  Age: 71 Year
  Sex: Female

DRUGS (15)
  1. BISOPROLOL [Concomitant]
     Active Substance: BISOPROLOL
     Dosage: 5 MG: 1-0-0
  2. FENTANYL. [Interacting]
     Active Substance: FENTANYL
     Dosage: 50 MG/10 CM2 EVERY 72 HR
     Route: 062
  3. LORAZEPAM. [Concomitant]
     Active Substance: LORAZEPAM
     Dosage: 0.5 MG, DAILY
  4. ENALAPRIL [Concomitant]
     Active Substance: ENALAPRIL
     Dosage: 5 MG: 1-0-0
  5. FENTANYL. [Suspect]
     Active Substance: FENTANYL
     Indication: BACK PAIN
     Dosage: 25 MG/10 CM2 EVERY 72 HR
     Route: 062
  6. TRAMADOL HYDROCHLORIDE. [Concomitant]
     Active Substance: TRAMADOL HYDROCHLORIDE
     Dosage: 25 MG, EVERY 8 HRS
  7. SPIRONOLACTONE. [Concomitant]
     Active Substance: SPIRONOLACTONE
     Dosage: 25 MG: 1-0-0
  8. MIRTAZAPINE. [Interacting]
     Active Substance: MIRTAZAPINE
     Dosage: 7.5 MG, DAILY IN THE NIGHT
  9. PARACETAMOL [Concomitant]
     Active Substance: ACETAMINOPHEN
     Dosage: 1 G: 1-1-1
  10. PREGABALIN. [Concomitant]
     Active Substance: PREGABALIN
     Dosage: 75 MG: 0-0-1
  11. ACENOCOUMAROL [Concomitant]
     Active Substance: ACENOCOUMAROL
     Dosage: UNK (ACCORDING TO GUIDELINES)
  12. SIMVASTATIN. [Concomitant]
     Active Substance: SIMVASTATIN
     Dosage: 20 MG: 0-0-1
  13. TRAMADOL HYDROCHLORIDE. [Concomitant]
     Active Substance: TRAMADOL HYDROCHLORIDE
     Dosage: 75 MG: 1-0-1
  14. DULOXETINE. [Interacting]
     Active Substance: DULOXETINE
     Dosage: 30 MG: 1-0-0
  15. FUROSEMIDE. [Concomitant]
     Active Substance: FUROSEMIDE
     Dosage: 40 MG: 2-0-0

REACTIONS (3)
  - Myoclonus [Recovering/Resolving]
  - Drug interaction [Recovering/Resolving]
  - Neurotoxicity [Recovering/Resolving]
